FAERS Safety Report 7864307-8 (Version None)
Quarter: 2011Q4

REPORT INFORMATION
  Report Type: 
  Country: None (occurrence: None)
  Receive Date: 20111028
  Receipt Date: 20110722
  Transmission Date: 20120403
  Serious: No
  Sender: FDA-Public Use
  Company Number: US-GLAXOSMITHKLINE-A0938020A

PATIENT
  Sex: Female

DRUGS (2)
  1. UNKNOWN MEDICATION [Concomitant]
     Indication: ASTHMA
  2. SEREVENT [Suspect]
     Indication: ASTHMA
     Route: 055

REACTIONS (2)
  - DRUG INEFFECTIVE [None]
  - THROAT IRRITATION [None]
